FAERS Safety Report 17565093 (Version 1)
Quarter: 2020Q1

REPORT INFORMATION
  Report Type: Spontaneous
  Country: US (occurrence: US)
  Receive Date: 20200319
  Receipt Date: 20200319
  Transmission Date: 20200409
  Serious: Yes (Other)
  Sender: FDA-Public Use
  Company Number: None

PATIENT
  Age: 88 Year
  Sex: Female
  Weight: 64.8 kg

DRUGS (18)
  1. LOSARTAN. [Concomitant]
     Active Substance: LOSARTAN
  2. VITAMIN B COMPLEX [Concomitant]
     Active Substance: CYANOCOBALAMIN\DEXPANTHENOL\NIACINAMIDE\PYRIDOXINE HYDROCHLORIDE\RIBOFLAVIN 5^-PHOSPHATE SODIUM\THIAMINE HYDROCHLORIDE\VITAMIN B COMPLEX
  3. ATORVASTATIN [Concomitant]
     Active Substance: ATORVASTATIN
  4. BIOTIN [Concomitant]
     Active Substance: BIOTIN
  5. COENZYME Q 10 [Concomitant]
  6. GLUCOSAMINE CHONDROITIN [Concomitant]
     Active Substance: CHONDROITIN SULFATE (BOVINE)\GLUCOSAMINE HYDROCHLORIDE
  7. IBRANCE [Suspect]
     Active Substance: PALBOCICLIB
     Indication: BREAST CANCER FEMALE
     Route: 048
     Dates: start: 20200110
  8. ALENDRONATE [Concomitant]
     Active Substance: ALENDRONATE SODIUM
  9. AMLODIPINE [Concomitant]
     Active Substance: AMLODIPINE BESYLATE
  10. CALCIUM 600 + D [Concomitant]
     Active Substance: CALCIUM\VITAMIN D
  11. HYDROCHLOROTHIAZIDE. [Concomitant]
     Active Substance: HYDROCHLOROTHIAZIDE
  12. LETROZOLE. [Concomitant]
     Active Substance: LETROZOLE
  13. ASPIRIN. [Concomitant]
     Active Substance: ASPIRIN
  14. FUROSEMIDE. [Concomitant]
     Active Substance: FUROSEMIDE
  15. NAPROXEN. [Concomitant]
     Active Substance: NAPROXEN
  16. OMEPRAZOLE. [Concomitant]
     Active Substance: OMEPRAZOLE
  17. TYLENOL [Concomitant]
     Active Substance: ACETAMINOPHEN
  18. THERAGRAN-M [Concomitant]
     Active Substance: VITAMINS

REACTIONS (1)
  - Fatigue [None]

NARRATIVE: CASE EVENT DATE: 20200319
